FAERS Safety Report 13010669 (Version 1)
Quarter: 2016Q4

REPORT INFORMATION
  Report Type: Spontaneous
  Country: FR (occurrence: FR)
  Receive Date: 20161208
  Receipt Date: 20161208
  Transmission Date: 20170207
  Serious: Yes (Hospitalization)
  Sender: FDA-Public Use
  Company Number: FR-ELI_LILLY_AND_COMPANY-FR201611010082

PATIENT
  Age: 58 Year
  Sex: Male

DRUGS (9)
  1. ABASAGLAR [Suspect]
     Active Substance: INSULIN GLARGINE
     Indication: DIABETES MELLITUS
     Dosage: 36 IU, QD
     Route: 058
     Dates: start: 20160902, end: 201610
  2. METFORMINE [Suspect]
     Active Substance: METFORMIN HYDROCHLORIDE
     Indication: DIABETES MELLITUS
     Dosage: 850 MG, BID
     Route: 048
     Dates: start: 20160902
  3. NOVORAPID [Suspect]
     Active Substance: INSULIN ASPART
     Dosage: 12 IU, UNKNOWN
     Route: 058
     Dates: start: 20160906, end: 201610
  4. SOLUPRED                           /00016201/ [Concomitant]
     Active Substance: PREDNISOLONE
     Dosage: 20 MG, UNKNOWN
     Route: 048
     Dates: start: 20160805, end: 20160826
  5. NOVORAPID [Suspect]
     Active Substance: INSULIN ASPART
     Dosage: 10 IU, UNKNOWN
     Route: 058
     Dates: start: 20160906, end: 201610
  6. IRBESARTAN. [Concomitant]
     Active Substance: IRBESARTAN
     Dosage: 150 MG, QD
     Route: 048
  7. DIFFU K [Concomitant]
     Active Substance: POTASSIUM CHLORIDE
     Dosage: 2 DF, BID
     Route: 048
     Dates: start: 20160805, end: 20160913
  8. NOVORAPID [Suspect]
     Active Substance: INSULIN ASPART
     Indication: DIABETES MELLITUS
     Dosage: 4 IU, UNKNOWN
     Route: 058
     Dates: start: 20160906, end: 201610
  9. DOLIPRANE [Concomitant]
     Active Substance: ACETAMINOPHEN
     Dosage: 1000 MG, PRN
     Route: 048

REACTIONS (3)
  - Hyperferritinaemia [Unknown]
  - Anaemia [Recovered/Resolved]
  - Glucose-6-phosphate dehydrogenase abnormal [Unknown]

NARRATIVE: CASE EVENT DATE: 20160913
